FAERS Safety Report 5943257-8 (Version None)
Quarter: 2008Q4

REPORT INFORMATION
  Report Type: 
  Country: None (occurrence: None)
  Receive Date: 20081021
  Receipt Date: 20080313
  Transmission Date: 20090506
  Serious: Yes (Other)
  Sender: FDA-Public Use
  Company Number: HQWYE301321JUL04

PATIENT
  Age: 61 Year
  Sex: Female
  Weight: 61.74 kg

DRUGS (2)
  1. PREMARIN [Suspect]
     Indication: MENSTRUATION IRREGULAR
     Dosage: ORAL
     Route: 048
     Dates: start: 19820101, end: 20000101
  2. PREMARIN [Suspect]
     Indication: NIGHT SWEATS
     Dosage: ORAL
     Route: 048
     Dates: start: 19820101, end: 20000101

REACTIONS (1)
  - BREAST CANCER [None]
